FAERS Safety Report 6338977-X (Version None)
Quarter: 2009Q3

REPORT INFORMATION
  Report Type: 
  Country: None (occurrence: None)
  Receive Date: 20090903
  Receipt Date: 20090825
  Transmission Date: 20100115
  Serious: Yes (Other)
  Sender: FDA-Public Use
  Company Number: FR-BAYER-200930093GPV

PATIENT
  Age: 21 Year
  Sex: Male

DRUGS (1)
  1. PRAZIQUANTEL [Suspect]
     Indication: SCHISTOSOMIASIS

REACTIONS (6)
  - ANOSOGNOSIA [None]
  - CEREBRAL INFARCTION [None]
  - CONFUSIONAL STATE [None]
  - MENTAL IMPAIRMENT [None]
  - SPLINTER HAEMORRHAGES [None]
  - VASCULITIS CEREBRAL [None]
